FAERS Safety Report 6552659-0 (Version None)
Quarter: 2010Q1

REPORT INFORMATION
  Report Type: 
  Country: None (occurrence: None)
  Receive Date: 20100126
  Receipt Date: 20100125
  Transmission Date: 20100710
  Serious: Yes (Hospitalization)
  Sender: FDA-Public Use
  Company Number: A0841345A

PATIENT
  Age: 55 Year
  Sex: Female

DRUGS (1)
  1. AVANDIA [Suspect]
     Dosage: 4MG TWICE PER DAY
     Route: 065
     Dates: start: 20011001, end: 20070501

REACTIONS (5)
  - CEREBROVASCULAR ACCIDENT [None]
  - CORONARY ARTERY STENOSIS [None]
  - DYSLIPIDAEMIA [None]
  - HYPERTENSION [None]
  - PULMONARY HYPERTENSION [None]
